FAERS Safety Report 18084971 (Version 1)
Quarter: 2020Q3

REPORT INFORMATION
  Report Type: Spontaneous
  Country: DE (occurrence: DE)
  Receive Date: 20200729
  Receipt Date: 20200729
  Transmission Date: 20201103
  Serious: Yes (Other)
  Sender: FDA-Public Use
  Company Number: NVSC2020DE209018

PATIENT
  Age: 15 Year
  Sex: Female

DRUGS (2)
  1. ILARIS [Suspect]
     Active Substance: CANAKINUMAB
     Dosage: 300 MG, EVERY FOUR WEKS
     Route: 065
  2. ILARIS [Suspect]
     Active Substance: CANAKINUMAB
     Indication: BRUCELLOSIS
     Dosage: 150 MG, EVERY FOUR WEEKS
     Route: 065

REACTIONS (4)
  - Inflammation [Unknown]
  - Colitis ulcerative [Unknown]
  - Diarrhoea haemorrhagic [Unknown]
  - Gastrointestinal disorder [Unknown]
